FAERS Safety Report 8778774 (Version 3)
Quarter: 2012Q4

REPORT INFORMATION
  Report Type: 
  Country: US (occurrence: US)
  Receive Date: 20120912
  Receipt Date: 20121130
  Transmission Date: 20130627
  Serious: No
  Sender: FDA-Public Use
  Company Number: US-PFIZER INC-2012222523

PATIENT
  Age: 88 Year
  Sex: Female

DRUGS (1)
  1. PROTONIX [Suspect]
     Dosage: UNK
     Dates: end: 201207

REACTIONS (3)
  - Hyperchlorhydria [Unknown]
  - Abdominal discomfort [Unknown]
  - Pancreatic cyst [Unknown]
